FAERS Safety Report 9931633 (Version 5)
Quarter: 2014Q2

REPORT INFORMATION
  Report Type: Spontaneous
  Country: IT (occurrence: None)
  Receive Date: 20140224
  Receipt Date: 20140417
  Transmission Date: 20141212
  Serious: Yes (Hospitalization, Other)
  Sender: FDA-Public Use
  Company Number: AUR-APL-2014-01821

PATIENT
  Age: 80 Year
  Sex: Male

DRUGS (3)
  1. RAMIPRIL [Suspect]
     Indication: PRODUCT USED FOR UNKNOWN INDICATION
     Route: 048
     Dates: start: 20131212, end: 20131212
  2. COUMADIN (WARFARIN SODIUM) [Suspect]
     Indication: PRODUCT USED FOR UNKNOWN INDICATION
     Route: 048
     Dates: start: 20050101, end: 20131212
  3. TILDIEM [Concomitant]

REACTIONS (11)
  - Presyncope [None]
  - Malaise [None]
  - Hypotension [None]
  - Confusional state [None]
  - Vision blurred [None]
  - Chest discomfort [None]
  - Blood creatinine increased [None]
  - Blood glucose increased [None]
  - Blood urea increased [None]
  - International normalised ratio increased [None]
  - Red blood cell count decreased [None]
